FAERS Safety Report 20532448 (Version 4)
Quarter: 2022Q4

REPORT INFORMATION
  Report Type: Spontaneous
  Country: US (occurrence: US)
  Receive Date: 20220301
  Receipt Date: 20221011
  Transmission Date: 20230113
  Serious: Yes (Other)
  Sender: FDA-Public Use
  Company Number: US-GLAXOSMITHKLINE-US2022AMR034710

PATIENT
  Sex: Female

DRUGS (2)
  1. ZEJULA [Suspect]
     Active Substance: NIRAPARIB
     Indication: Ovarian cancer
     Dosage: 100 MG
     Dates: start: 201907
  2. ZEJULA [Suspect]
     Active Substance: NIRAPARIB
     Dosage: 100 MG, QD
     Route: 048
     Dates: start: 20220128, end: 20220505

REACTIONS (6)
  - Myelosuppression [Not Recovered/Not Resolved]
  - Heart rate increased [Unknown]
  - Blood magnesium decreased [Unknown]
  - Haemoglobin decreased [Not Recovered/Not Resolved]
  - Bone marrow disorder [Unknown]
  - Product dose omission issue [Unknown]
